FAERS Safety Report 4779728-X (Version None)
Quarter: 2005Q3

REPORT INFORMATION
  Report Type: 
  Country: None (occurrence: None)
  Receive Date: 20050927
  Receipt Date: 20050920
  Transmission Date: 20060218
  Serious: Yes (Hospitalization)
  Sender: FDA-Public Use
  Company Number: PHRM2005FR02500

PATIENT
  Age: 80 Year
  Sex: Male

DRUGS (4)
  1. PERMIXON [Suspect]
     Route: 048
     Dates: start: 20000101
  2. KARDEGIC [Suspect]
     Dosage: 75 MG, QD
     Route: 048
     Dates: start: 20040901
  3. TAHOR [Suspect]
     Dosage: 80 MG, QD
     Route: 048
     Dates: start: 20040901, end: 20041226
  4. TAREG [Suspect]
     Dosage: 80 MG, QD
     Route: 048
     Dates: start: 20020101

REACTIONS (1)
  - NEUROPATHY PERIPHERAL [None]
